FAERS Safety Report 9644351 (Version 5)
Quarter: 2015Q2

REPORT INFORMATION
  Report Type: Report from Study
  Country: US (occurrence: US)
  Receive Date: 20131025
  Receipt Date: 20150522
  Transmission Date: 20150821
  Serious: Yes (Hospitalization)
  Sender: FDA-Public Use
  Company Number: US-BIOGENIDEC-2013BI095237

PATIENT
  Age: 49 Year
  Sex: Female

DRUGS (3)
  1. TECFIDERA [Suspect]
     Active Substance: DIMETHYL FUMARATE
     Indication: MULTIPLE SCLEROSIS
     Route: 048
     Dates: start: 20130806, end: 201308
  2. PREDNISONE. [Concomitant]
     Active Substance: PREDNISONE
  3. TECFIDERA [Suspect]
     Active Substance: DIMETHYL FUMARATE
     Indication: MULTIPLE SCLEROSIS
     Route: 048
     Dates: start: 20130730, end: 20130805

REACTIONS (14)
  - Abdominal pain upper [Recovered/Resolved with Sequelae]
  - Colitis [Recovered/Resolved]
  - Ulcer haemorrhage [Recovered/Resolved]
  - Vomiting [Recovered/Resolved]
  - Diarrhoea [Recovered/Resolved]
  - Gastrointestinal disorder [Recovered/Resolved]
  - Hepatomegaly [Recovered/Resolved]
  - Irritable bowel syndrome [Recovered/Resolved]
  - Abdominal pain [Recovered/Resolved]
  - Gastroenteritis norovirus [Recovered/Resolved]
  - Oral fungal infection [Not Recovered/Not Resolved]
  - Diverticulitis [Recovered/Resolved]
  - Nausea [Recovered/Resolved]
  - Fungal rhinitis [Not Recovered/Not Resolved]

NARRATIVE: CASE EVENT DATE: 201307
